FAERS Safety Report 19687064 (Version 1)
Quarter: 2021Q3

REPORT INFORMATION
  Report Type: Spontaneous
  Country: US (occurrence: US)
  Receive Date: 20210811
  Receipt Date: 20210811
  Transmission Date: 20211014
  Serious: No
  Sender: FDA-Public Use
  Company Number: US-PFIZER INC-2021881866

PATIENT
  Age: 67 Year
  Sex: Female
  Weight: 73.94 kg

DRUGS (1)
  1. RAPAMUNE [Suspect]
     Active Substance: SIROLIMUS
     Indication: HEART TRANSPLANT
     Dosage: 0.5 MG, 3X/DAY
     Route: 048
     Dates: start: 20210201

REACTIONS (3)
  - Drug level decreased [Unknown]
  - Off label use [Unknown]
  - Visual impairment [Unknown]

NARRATIVE: CASE EVENT DATE: 20210201
